FAERS Safety Report 6909730-0 (Version None)
Quarter: 2010Q3

REPORT INFORMATION
  Report Type: 
  Country: None (occurrence: None)
  Receive Date: 20100806
  Receipt Date: 20100802
  Transmission Date: 20110219
  Serious: Yes (Other)
  Sender: FDA-Public Use
  Company Number: US-ASTRAZENECA-2007UW11701

PATIENT
  Age: 9829 Day
  Sex: Male

DRUGS (3)
  1. SEROQUEL [Suspect]
     Indication: SCHIZOAFFECTIVE DISORDER
     Route: 048
     Dates: start: 20031006, end: 20071015
  2. SEROQUEL [Suspect]
     Indication: BURNOUT SYNDROME
     Route: 048
     Dates: start: 20031006, end: 20071015
  3. RISPERDAL [Concomitant]
     Dates: start: 20041024, end: 20060828

REACTIONS (7)
  - BLOOD CHOLESTEROL INCREASED [None]
  - DIABETES MELLITUS [None]
  - DIABETIC NEUROPATHY [None]
  - HYPERLIPIDAEMIA [None]
  - MIXED HYPERLIPIDAEMIA [None]
  - STRESS [None]
  - WEIGHT INCREASED [None]
